FAERS Safety Report 23888745 (Version 1)
Quarter: 2024Q2

REPORT INFORMATION
  Report Type: Spontaneous
  Country: US (occurrence: None)
  Receive Date: 20240522
  Receipt Date: 20240522
  Transmission Date: 20240716
  Serious: Yes (Hospitalization)
  Sender: FDA-Public Use
  Company Number: None

PATIENT
  Sex: Male

DRUGS (3)
  1. SILDENAFIL CITRATE [Suspect]
     Active Substance: SILDENAFIL CITRATE
     Dosage: OTHER FREQUENCY : EVERY 8 HOURS;?OTHER ROUTE : G-TUBE;?
     Route: 050
     Dates: start: 202312
  2. EPIDIOLEX ORAL SOLN [Concomitant]
  3. OPSUMIT [Concomitant]

REACTIONS (1)
  - Hypertension [None]
